FAERS Safety Report 18594672 (Version 1)
Quarter: 2020Q4

REPORT INFORMATION
  Report Type: Spontaneous
  Country: US (occurrence: US)
  Receive Date: 20201208
  Receipt Date: 20201208
  Transmission Date: 20210114
  Serious: Yes (Other)
  Sender: FDA-Public Use
  Company Number: None

PATIENT
  Age: 27 Year
  Sex: Female
  Weight: 61.24 kg

DRUGS (2)
  1. BUPROPION HCL 150 MG [Suspect]
     Active Substance: BUPROPION HYDROCHLORIDE
     Indication: DEPRESSION
     Route: 048
     Dates: start: 20171130
  2. BUPROPION HCL 150 MG [Suspect]
     Active Substance: BUPROPION HYDROCHLORIDE
     Route: 048
     Dates: start: 201704

REACTIONS (5)
  - Mouth ulceration [None]
  - Fear [None]
  - Depression [None]
  - Anxiety [None]
  - Abdominal pain upper [None]

NARRATIVE: CASE EVENT DATE: 20171130
